FAERS Safety Report 18598866 (Version 2)
Quarter: 2020Q4

REPORT INFORMATION
  Report Type: Spontaneous
  Country: CZ (occurrence: CZ)
  Receive Date: 20201210
  Receipt Date: 20201223
  Transmission Date: 20210114
  Serious: Yes (Other)
  Sender: FDA-Public Use
  Company Number: CZ-JNJFOC-20201206726

PATIENT
  Age: 60 Year
  Sex: Female

DRUGS (5)
  1. CALTRATE [Concomitant]
     Active Substance: CALCIUM CARBONATE
     Dosage: 600/400
     Route: 065
  2. STELARA [Suspect]
     Active Substance: USTEKINUMAB
     Indication: PSORIASIS
     Route: 058
     Dates: start: 20120529
  3. IBANDRONATE [Concomitant]
     Active Substance: IBANDRONATE SODIUM
     Dosage: IN THE MORNING ON AN EMPTY STOMACH
     Route: 065
  4. LANZUL [Concomitant]
     Active Substance: LANSOPRAZOLE
     Route: 065
  5. VIGANTOL [COLECALCIFEROL] [Concomitant]
     Active Substance: CHOLECALCIFEROL
     Route: 065

REACTIONS (1)
  - Lyme disease [Recovered/Resolved]

NARRATIVE: CASE EVENT DATE: 20201112
